FAERS Safety Report 5595429-2 (Version None)
Quarter: 2008Q1

REPORT INFORMATION
  Report Type: 
  Country: None (occurrence: None)
  Receive Date: 20080118
  Receipt Date: 20080109
  Transmission Date: 20080703
  Serious: Yes (Death)
  Sender: FDA-Public Use
  Company Number: US-JNJFOC-20080103761

PATIENT
  Sex: Male
  Weight: 88.45 kg

DRUGS (12)
  1. DURAGESIC-100 [Suspect]
     Route: 062
  2. DURAGESIC-100 [Suspect]
     Route: 062
  3. DURAGESIC-100 [Suspect]
     Indication: PAIN
     Route: 062
  4. ALLEGRA [Concomitant]
  5. CLONAZEPAM [Concomitant]
  6. DIOVAN [Concomitant]
  7. ACETAMINOPHEN AND HYDROCODONE BITARTRATE [Concomitant]
  8. PREVACID [Concomitant]
  9. RESTORIL [Concomitant]
  10. MIRTAZAPINE [Concomitant]
  11. ALBUTEROL [Concomitant]
  12. LIDODERM [Concomitant]
     Route: 061

REACTIONS (2)
  - INTENTIONAL DRUG MISUSE [None]
  - NARCOTIC INTOXICATION [None]
